FAERS Safety Report 9986434 (Version 1)
Quarter: 2014Q1

REPORT INFORMATION
  Report Type: Report from Study
  Country: US (occurrence: US)
  Receive Date: 20140307
  Receipt Date: 20140307
  Transmission Date: 20141002
  Serious: No
  Sender: FDA-Public Use
  Company Number: US-ABBVIE-13P-163-1090362-00

PATIENT
  Age: 36 Year
  Sex: Male

DRUGS (7)
  1. HUMIRA [Suspect]
     Indication: CROHN^S DISEASE
     Dates: start: 20130411
  2. CHOLESTYRAMINE [Concomitant]
     Indication: CROHN^S DISEASE
     Dosage: POWDER IN WATER
  3. ENTOCORT [Concomitant]
     Indication: CROHN^S DISEASE
  4. UNKNOWN ALLERGY MEDICATION [Concomitant]
     Indication: PRODUCT USED FOR UNKNOWN INDICATION
     Dosage: ONCE DAILY AS NEEDED
  5. ALIGN [Concomitant]
     Indication: PRODUCT USED FOR UNKNOWN INDICATION
  6. VITAMIN D [Concomitant]
     Indication: PRODUCT USED FOR UNKNOWN INDICATION
     Dosage: 2000 IU DAILY
  7. VITAMIN B12 [Concomitant]
     Indication: PRODUCT USED FOR UNKNOWN INDICATION

REACTIONS (3)
  - Genital abscess [Recovered/Resolved]
  - Injection site haemorrhage [Recovering/Resolving]
  - Injection site bruising [Recovering/Resolving]
